FAERS Safety Report 9253801 (Version 5)
Quarter: 2014Q1

REPORT INFORMATION
  Report Type: Spontaneous
  Country: US (occurrence: US)
  Receive Date: 20130425
  Receipt Date: 20140204
  Transmission Date: 20141002
  Serious: Yes (Disabling, Other)
  Sender: FDA-Public Use
  Company Number: US-CELGENEUS-163-21880-12022511

PATIENT
  Age: 59 Year
  Sex: Female
  Weight: 47.6 kg

DRUGS (9)
  1. REVLIMID [Suspect]
     Indication: PLASMA CELL MYELOMA
     Dosage: 25 MILLIGRAM
     Route: 048
     Dates: start: 20081201
  2. DEXAMETHASONE [Suspect]
     Indication: PRODUCT USED FOR UNKNOWN INDICATION
     Route: 065
  3. Z-PAK [Concomitant]
     Indication: PRODUCT USED FOR UNKNOWN INDICATION
     Route: 065
  4. CENTRUM SILVER [Concomitant]
     Indication: PRODUCT USED FOR UNKNOWN INDICATION
     Route: 065
  5. GLUCOSAMINE CHON [Concomitant]
     Indication: PRODUCT USED FOR UNKNOWN INDICATION
     Route: 065
  6. SUPER B COMPLEX [Concomitant]
     Indication: PRODUCT USED FOR UNKNOWN INDICATION
     Route: 048
  7. VITAMIN C [Concomitant]
     Indication: PRODUCT USED FOR UNKNOWN INDICATION
     Route: 065
  8. VALACYCLOVIR HCL [Concomitant]
     Indication: PRODUCT USED FOR UNKNOWN INDICATION
     Route: 065
  9. ESCITALOPRAM OXALATE [Concomitant]
     Indication: PRODUCT USED FOR UNKNOWN INDICATION
     Route: 065

REACTIONS (24)
  - Multiple fractures [Unknown]
  - Blister [Unknown]
  - Visual acuity reduced [Recovered/Resolved]
  - Phlebitis [Unknown]
  - Weight increased [Recovered/Resolved]
  - Back pain [Recovered/Resolved]
  - Ear discomfort [Recovered/Resolved]
  - Bone disorder [Unknown]
  - Intervertebral disc protrusion [Unknown]
  - Anticoagulation drug level above therapeutic [Unknown]
  - Insomnia [Recovered/Resolved]
  - Arthritis [Unknown]
  - Upper-airway cough syndrome [Recovered/Resolved]
  - Headache [Recovered/Resolved]
  - Sinusitis [Unknown]
  - Pain [Recovered/Resolved]
  - Oropharyngeal pain [Recovered/Resolved]
  - Fatigue [Recovered/Resolved]
  - Productive cough [Recovered/Resolved]
  - Candida infection [Unknown]
  - Pneumonia [Unknown]
  - Laryngitis [Unknown]
  - Fluid retention [Unknown]
  - Asthenia [Unknown]
